FAERS Safety Report 11844041 (Version 1)
Quarter: 2015Q4

REPORT INFORMATION
  Report Type: Spontaneous
  Country: US (occurrence: None)
  Receive Date: 20151216
  Receipt Date: 20151216
  Transmission Date: 20160305
  Serious: Yes (Other)
  Sender: FDA-Public Use
  Company Number: None

PATIENT
  Age: 61 Year
  Sex: Female

DRUGS (9)
  1. CEPHALEXIN. [Concomitant]
     Active Substance: CEPHALEXIN
  2. DEXAMETHASONE. [Concomitant]
     Active Substance: DEXAMETHASONE
  3. LEVOFLOXACIN. [Concomitant]
     Active Substance: LEVOFLOXACIN
  4. PROCHLORPERIDINE [Concomitant]
  5. OXYCODONE [Concomitant]
     Active Substance: OXYCODONE
  6. DIAZEPAM. [Concomitant]
     Active Substance: DIAZEPAM
  7. ESTRADIOL. [Concomitant]
     Active Substance: ESTRADIOL
  8. ZOLPIDEM [Concomitant]
     Active Substance: ZOLPIDEM\ZOLPIDEM TARTRATE
  9. FARYDAK [Suspect]
     Active Substance: PANOBINOSTAT
     Indication: PLASMA CELL MYELOMA
     Route: 048

REACTIONS (4)
  - Tremor [None]
  - Adverse drug reaction [None]
  - Transfusion [None]
  - Platelet transfusion [None]

NARRATIVE: CASE EVENT DATE: 201512
